FAERS Safety Report 5760358-8 (Version None)
Quarter: 2008Q2

REPORT INFORMATION
  Report Type: 
  Country: None (occurrence: None)
  Receive Date: 20080605
  Receipt Date: 20080527
  Transmission Date: 20081010
  Serious: Yes (Life-Threatening)
  Sender: FDA-Public Use
  Company Number: JP-MERCK-0805USA02423

PATIENT
  Age: 48 Year
  Sex: Male

DRUGS (4)
  1. ZETIA [Suspect]
     Indication: HYPERLIPIDAEMIA
     Route: 048
     Dates: start: 20080425, end: 20080507
  2. ALLOPURINOL [Concomitant]
     Route: 065
     Dates: start: 20071101
  3. GLIMEPIRIDE [Concomitant]
     Route: 065
     Dates: start: 20071101
  4. BEZAFIBRATE [Concomitant]
     Route: 065
     Dates: start: 20071101

REACTIONS (2)
  - LIVER DISORDER [None]
  - RASH [None]
